FAERS Safety Report 22189595 (Version 1)
Quarter: 2023Q2

REPORT INFORMATION
  Report Type: Report from Study
  Country: BR (occurrence: BR)
  Receive Date: 20230410
  Receipt Date: 20230410
  Transmission Date: 20230722
  Serious: Yes (Other)
  Sender: FDA-Public Use
  Company Number: BR-CELLTRION INC.-2023BR006894

PATIENT

DRUGS (2)
  1. TRUXIMA [Suspect]
     Active Substance: RITUXIMAB-ABBS
     Indication: Granulomatosis with polyangiitis
     Dosage: 2 AMPOULES (500MG) EVERY 6 MONTHS
     Route: 042
     Dates: start: 20220916, end: 20220916
  2. PREDNISONE [Concomitant]
     Active Substance: PREDNISONE
     Indication: Granulomatosis with polyangiitis
     Dosage: 1 PILL PER DAY
     Route: 048
     Dates: start: 202105

REACTIONS (2)
  - Neutropenia [Unknown]
  - Intentional dose omission [Unknown]

NARRATIVE: CASE EVENT DATE: 20230315
